FAERS Safety Report 22942193 (Version 5)
Quarter: 2023Q4

REPORT INFORMATION
  Report Type: Other
  Country: DE (occurrence: DE)
  Receive Date: 20230914
  Receipt Date: 20231107
  Transmission Date: 20240109
  Serious: Yes (Hospitalization)
  Sender: FDA-Public Use
  Company Number: DE-002147023-NVSC2023DE096955

PATIENT
  Sex: Female

DRUGS (1)
  1. RITUXIMAB [Suspect]
     Active Substance: RITUXIMAB
     Indication: Product used for unknown indication
     Route: 041

REACTIONS (5)
  - Appendicitis [Recovered/Resolved]
  - Salpingitis [Recovered/Resolved]
  - Vaginitis gardnerella [Not Recovered/Not Resolved]
  - Rash [Not Recovered/Not Resolved]
  - Oophoritis [Recovered/Resolved]

NARRATIVE: CASE EVENT DATE: 20220915
